FAERS Safety Report 8156109-2 (Version None)
Quarter: 2012Q1

REPORT INFORMATION
  Report Type: 
  Country: None (occurrence: None)
  Receive Date: 20120222
  Receipt Date: 20120214
  Transmission Date: 20120608
  Serious: Yes (Other)
  Sender: FDA-Public Use
  Company Number: AR-AMGEN-ARGSP2012009965

PATIENT
  Age: 54 Year
  Sex: Female

DRUGS (4)
  1. ENBREL [Suspect]
     Indication: RHEUMATOID ARTHRITIS
     Dosage: 50 MG, WEEKLY
     Route: 058
     Dates: start: 20090706, end: 20100101
  2. ARTRAIT                            /00113801/ [Concomitant]
     Dosage: UNK
     Route: 048
  3. DICLOFENAC [Concomitant]
     Dosage: UNK
  4. ENBREL [Suspect]
     Dosage: UNK
     Dates: end: 20120101

REACTIONS (4)
  - FALL [None]
  - DEVICE RELATED INFECTION [None]
  - TIBIA FRACTURE [None]
  - FIBULA FRACTURE [None]
